FAERS Safety Report 25837477 (Version 1)
Quarter: 2025Q3

REPORT INFORMATION
  Report Type: Report from Study
  Country: CA (occurrence: CA)
  Receive Date: 20250923
  Receipt Date: 20250923
  Transmission Date: 20251020
  Serious: Yes (Other)
  Sender: JOHNSON AND JOHNSON
  Company Number: CA-JNJFOC-20250932225

PATIENT
  Age: 12 Year
  Sex: Female
  Weight: 34.5 kg

DRUGS (1)
  1. REMICADE [Suspect]
     Active Substance: INFLIXIMAB
     Indication: Crohn^s disease
     Route: 041
     Dates: start: 2021

REACTIONS (2)
  - Haematochezia [Recovered/Resolved]
  - Faeces hard [Unknown]

NARRATIVE: CASE EVENT DATE: 20250911
